FAERS Safety Report 5223956-6 (Version None)
Quarter: 2007Q1

REPORT INFORMATION
  Report Type: 
  Country: None (occurrence: None)
  Receive Date: 20070130
  Receipt Date: 20070125
  Transmission Date: 20070707
  Serious: Yes (Other)
  Sender: FDA-Public Use
  Company Number: US-GLAXOSMITHKLINE-A0637057A

PATIENT
  Age: 78 Year
  Sex: Male

DRUGS (5)
  1. COREG [Suspect]
     Indication: HYPERTENSION
     Dosage: 6.25MG TWICE PER DAY
     Route: 048
  2. ZOCOR [Concomitant]
  3. ASPIRIN [Concomitant]
  4. PROSCAR [Concomitant]
  5. COUMADIN [Concomitant]

REACTIONS (5)
  - BRONCHITIS [None]
  - CARDIAC PACEMAKER INSERTION [None]
  - CORONARY ARTERY BYPASS [None]
  - DIZZINESS [None]
  - LOSS OF CONSCIOUSNESS [None]
